FAERS Safety Report 8973856 (Version 2)
Quarter: 2013Q1

REPORT INFORMATION
  Report Type: Spontaneous
  Country: KR (occurrence: KR)
  Receive Date: 20121219
  Receipt Date: 20130103
  Transmission Date: 20140127
  Serious: Yes (Death)
  Sender: FDA-Public Use
  Company Number: KR-CELGENEUS-286-21880-12121306

PATIENT
  Age: 38 Year
  Sex: Female

DRUGS (3)
  1. REVLIMID [Suspect]
     Indication: PLASMA CELL MYELOMA
     Dosage: 5 MILLIGRAM
     Route: 048
     Dates: start: 20120927, end: 20121017
  2. FENTANYL [Concomitant]
     Indication: PAIN MANAGEMENT
     Dosage: 50 MICROGRAM
     Route: 065
     Dates: start: 20121002, end: 20121201
  3. LANSOPRAZOLE [Concomitant]
     Indication: GASTROINTESTINAL HAEMORRHAGE
     Dosage: 30 MILLIGRAM
     Route: 048
     Dates: start: 20120920, end: 20121201

REACTIONS (2)
  - Plasma cell myeloma [Fatal]
  - Sepsis [Fatal]
